FAERS Safety Report 14934178 (Version 4)
Quarter: 2019Q2

REPORT INFORMATION
  Report Type: Spontaneous
  Country: US (occurrence: US)
  Receive Date: 20180524
  Receipt Date: 20190620
  Transmission Date: 20190711
  Serious: No
  Sender: FDA-Public Use
  Company Number: US-ASTRAZENECA-2018SE29721

PATIENT
  Sex: Male

DRUGS (3)
  1. BYDUREON BCISE [Suspect]
     Active Substance: EXENATIDE
     Indication: TYPE 2 DIABETES MELLITUS
     Route: 058
     Dates: start: 20180304
  2. BYDUREON [Suspect]
     Active Substance: EXENATIDE
     Dosage: UNKNOWN DOSE AND FREQUENCY
     Route: 065
     Dates: end: 20180225
  3. BYDUREON [Suspect]
     Active Substance: EXENATIDE
     Dosage: UNKNOWN DOSE AND FREQUENCY
     Route: 065

REACTIONS (6)
  - Device leakage [Unknown]
  - Product dose omission [Unknown]
  - Injection site haemorrhage [Unknown]
  - Device malfunction [Unknown]
  - Incorrect dose administered [Unknown]
  - Injection site extravasation [Unknown]
